FAERS Safety Report 5899885-1 (Version None)
Quarter: 2008Q3

REPORT INFORMATION
  Report Type: 
  Country: None (occurrence: None)
  Receive Date: 20080925
  Receipt Date: 20080925
  Transmission Date: 20090109
  Serious: No
  Sender: FDA-Public Use
  Company Number: None

PATIENT
  Age: 47 Year
  Sex: Male
  Weight: 86.1834 kg

DRUGS (1)
  1. CIALIS [Suspect]
     Indication: ERECTILE DYSFUNCTION
     Dosage: 20 MG. WEEKLEY PO
     Route: 048

REACTIONS (4)
  - DIZZINESS [None]
  - HYPOACUSIS [None]
  - TINNITUS [None]
  - VERTIGO [None]
